FAERS Safety Report 13412928 (Version 2)
Quarter: 2017Q2

REPORT INFORMATION
  Report Type: Report from Study
  Country: US (occurrence: US)
  Receive Date: 20170407
  Receipt Date: 20170417
  Transmission Date: 20170830
  Serious: No
  Sender: FDA-Public Use
  Company Number: US-AMGEN-USASL2017051986

PATIENT
  Age: 74 Year
  Sex: Female

DRUGS (1)
  1. ENBREL [Suspect]
     Active Substance: ETANERCEPT
     Indication: RHEUMATOID ARTHRITIS
     Dosage: 50 MG, QWK
     Route: 065
     Dates: end: 20170317

REACTIONS (8)
  - Dyspnoea [Recovered/Resolved]
  - Eye swelling [Not Recovered/Not Resolved]
  - Rash erythematous [Unknown]
  - Ocular hyperaemia [Unknown]
  - Pruritus [Not Recovered/Not Resolved]
  - Rash pruritic [Unknown]
  - Urticaria [Unknown]
  - Eye pain [Unknown]

NARRATIVE: CASE EVENT DATE: 2017
